FAERS Safety Report 9414859 (Version 3)
Quarter: 2015Q2

REPORT INFORMATION
  Report Type: Report from Study
  Country: DE (occurrence: DE)
  Receive Date: 20130723
  Receipt Date: 20150429
  Transmission Date: 20150821
  Serious: Yes (Life-Threatening, Hospitalization)
  Sender: FDA-Public Use
  Company Number: DE-ROCHE-1251950

PATIENT
  Age: 59 Year
  Sex: Male

DRUGS (9)
  1. PANTOZOL [Concomitant]
     Active Substance: PANTOPRAZOLE SODIUM
     Route: 065
     Dates: start: 201306
  2. PEG-INTERFERON ALFA 2A [Suspect]
     Active Substance: PEGINTERFERON ALFA-2A
     Indication: CHRONIC HEPATITIS C
     Route: 058
  3. CLEXANE [Concomitant]
     Active Substance: ENOXAPARIN SODIUM
  4. RIBAVIRIN. [Suspect]
     Active Substance: RIBAVIRIN
     Indication: CHRONIC HEPATITIS C
     Route: 048
  5. BOCEPREVIR [Suspect]
     Active Substance: BOCEPREVIR
     Indication: CHRONIC HEPATITIS C
     Route: 048
     Dates: start: 20130315, end: 201307
  6. BIFITERAL [Concomitant]
     Active Substance: LACTULOSE
     Route: 065
     Dates: start: 201306
  7. ACTRAPID [Concomitant]
     Active Substance: INSULIN HUMAN
  8. CLEXANE [Concomitant]
     Active Substance: ENOXAPARIN SODIUM
  9. METFORMIN [Concomitant]
     Active Substance: METFORMIN HYDROCHLORIDE
     Route: 065

REACTIONS (1)
  - Ascites [Recovered/Resolved]

NARRATIVE: CASE EVENT DATE: 20130712
